FAERS Safety Report 11106320 (Version 2)
Quarter: 2015Q3

REPORT INFORMATION
  Report Type: Spontaneous
  Country: JP (occurrence: JP)
  Receive Date: 20150512
  Receipt Date: 20150707
  Transmission Date: 20151125
  Serious: Yes (Death, Hospitalization)
  Sender: FDA-Public Use
  Company Number: JP-PFIZER INC-2015155251

PATIENT
  Age: 56 Year
  Sex: Male

DRUGS (4)
  1. METHYLPREDNISOLONE. [Suspect]
     Active Substance: METHYLPREDNISOLONE
     Indication: IDIOPATHIC PNEUMONIA SYNDROME
     Dosage: 1 G, DAILY
  2. METHYLPREDNISOLONE. [Suspect]
     Active Substance: METHYLPREDNISOLONE
     Dosage: 40 MG, DAILY FOR SUBSEQUENT 7 DAYS
  3. ETANERCEPT [Suspect]
     Active Substance: ETANERCEPT
     Indication: IDIOPATHIC PNEUMONIA SYNDROME
     Dosage: 16 MG, 2X/WEEK (0.4 MG/KG)
     Route: 058
  4. METHYLPREDNISOLONE. [Suspect]
     Active Substance: METHYLPREDNISOLONE
     Dosage: 80 MG, DAILY FOR 7 DAYS

REACTIONS (5)
  - Cytomegalovirus infection [Fatal]
  - Respiratory failure [Fatal]
  - Drug ineffective for unapproved indication [Unknown]
  - Off label use [Unknown]
  - Haemorrhage [Fatal]
